FAERS Safety Report 10198358 (Version 1)
Quarter: 2014Q2

REPORT INFORMATION
  Report Type: Spontaneous
  Country: US (occurrence: US)
  Receive Date: 20140527
  Receipt Date: 20140527
  Transmission Date: 20141212
  Serious: No
  Sender: FDA-Public Use
  Company Number: US-NOVEN-13US007203

PATIENT
  Age: 27 Year
  Sex: Female

DRUGS (4)
  1. DAYTRANA [Suspect]
     Indication: ATTENTION DEFICIT/HYPERACTIVITY DISORDER
     Dosage: 30 MG, CUTS PATCHES
     Route: 062
     Dates: start: 201306
  2. CLONIDINE [Concomitant]
     Indication: MENTAL RETARDATION
     Route: 048
  3. TEGRETOL [Concomitant]
     Indication: MENTAL RETARDATION
     Route: 048
  4. ATIVAN [Concomitant]
     Indication: MENTAL RETARDATION
     Route: 048

REACTIONS (6)
  - Energy increased [Unknown]
  - Diarrhoea [Not Recovered/Not Resolved]
  - Incorrect drug administration duration [Unknown]
  - Wrong technique in drug usage process [Not Recovered/Not Resolved]
  - Drug prescribing error [None]
  - Off label use [None]
